FAERS Safety Report 7577835-X (Version None)
Quarter: 2011Q2

REPORT INFORMATION
  Report Type: 
  Country: None (occurrence: None)
  Receive Date: 20110628
  Receipt Date: 20110615
  Transmission Date: 20111010
  Serious: Yes (Hospitalization)
  Sender: FDA-Public Use
  Company Number: PHHY2011US48195

PATIENT
  Sex: Female
  Weight: 62.585 kg

DRUGS (1)
  1. EXJADE [Suspect]
     Dosage: 1250 MG, DAILY
     Route: 048
     Dates: start: 20110301, end: 20110401

REACTIONS (3)
  - MALAISE [None]
  - NAUSEA [None]
  - SWELLING [None]
